FAERS Safety Report 10097119 (Version 2)
Quarter: 2014Q2

REPORT INFORMATION
  Report Type: Spontaneous
  Country: US (occurrence: US)
  Receive Date: 20140422
  Receipt Date: 20140422
  Transmission Date: 20141212
  Serious: Yes (Other)
  Sender: FDA-Public Use
  Company Number: US-GILEAD-2012-0065711

PATIENT
  Sex: Female

DRUGS (2)
  1. LETAIRIS [Suspect]
     Indication: PULMONARY HYPERTENSION
     Dosage: 5 MG, UNK
     Route: 048
     Dates: end: 20121120
  2. LETAIRIS [Suspect]
     Indication: EMBOLISM
     Dosage: 5 MG, UNK
     Route: 048
     Dates: start: 20130215

REACTIONS (2)
  - Fluid retention [Unknown]
  - Weight increased [Unknown]
